FAERS Safety Report 12718630 (Version 1)
Quarter: 2016Q3

REPORT INFORMATION
  Report Type: Other
  Country: None (occurrence: US)
  Receive Date: 20160906
  Receipt Date: 20160906
  Transmission Date: 20161109
  Serious: Yes (Other)
  Sender: FDA-Public Use
  Company Number: US-GUTHY-RENKER LLC-1057101

PATIENT
  Age: 40 Year
  Sex: Female

DRUGS (3)
  1. IT COSMETICS BYE BYE FOUNDATION SPF 50+ [Suspect]
     Active Substance: TITANIUM DIOXIDE\ZINC OXIDE
     Indication: PROPHYLAXIS AGAINST SOLAR RADIATION
     Route: 061
     Dates: start: 20160824, end: 20160824
  2. CLARITIN [Concomitant]
     Active Substance: LORATADINE
  3. FLONASE [Concomitant]
     Active Substance: FLUTICASONE PROPIONATE

REACTIONS (4)
  - Rash [None]
  - Swollen tongue [None]
  - Urticaria [Recovered/Resolved]
  - Throat tightness [None]

NARRATIVE: CASE EVENT DATE: 20160824
